FAERS Safety Report 25858933 (Version 1)
Quarter: 2025Q3

REPORT INFORMATION
  Report Type: Spontaneous
  Country: US (occurrence: US)
  Receive Date: 20250929
  Receipt Date: 20250929
  Transmission Date: 20251021
  Serious: Yes (Hospitalization)
  Sender: IMPRIMIS NJOF, LLC
  Company Number: US-Imprimis NJOF, LLC-2185508

PATIENT
  Sex: Female

DRUGS (1)
  1. BROMFENAC\MOXIFLOXACIN\PREDNISONE [Suspect]
     Active Substance: BROMFENAC\MOXIFLOXACIN\PREDNISONE

REACTIONS (1)
  - Abdominal discomfort [Recovered/Resolved]
